FAERS Safety Report 11800866 (Version 1)
Quarter: 2015Q4

REPORT INFORMATION
  Report Type: Spontaneous
  Country: GB (occurrence: GB)
  Receive Date: 20151204
  Receipt Date: 20151204
  Transmission Date: 20160305
  Serious: Yes (Other)
  Sender: FDA-Public Use
  Company Number: GB-AMGEN-GBRSP2015127409

PATIENT
  Age: 45 Year
  Sex: Female
  Weight: 42.3 kg

DRUGS (5)
  1. CALCICHEW [Concomitant]
     Active Substance: CALCIUM CARBONATE
  2. LANSOPRAZOLE. [Concomitant]
     Active Substance: LANSOPRAZOLE
     Dosage: 30 MG, UNK
  3. PARACETAMOL [Concomitant]
     Active Substance: ACETAMINOPHEN
  4. PROLIA [Suspect]
     Active Substance: DENOSUMAB
     Indication: PRODUCT USED FOR UNKNOWN INDICATION
     Dosage: 60 MG, UNK
     Route: 051
     Dates: start: 20150923
  5. CODEINE [Concomitant]
     Active Substance: CODEINE
     Dosage: 15 MG, UNK

REACTIONS (8)
  - Back pain [Recovered/Resolved with Sequelae]
  - Urinary tract infection [Recovered/Resolved]
  - Fatigue [Not Recovered/Not Resolved]
  - Nausea [Not Recovered/Not Resolved]
  - Malaise [Not Recovered/Not Resolved]
  - Diarrhoea [Recovering/Resolving]
  - Paraesthesia [Recovering/Resolving]
  - Arthralgia [Recovered/Resolved with Sequelae]

NARRATIVE: CASE EVENT DATE: 20150924
